FAERS Safety Report 23638254 (Version 1)
Quarter: 2024Q1

REPORT INFORMATION
  Report Type: Spontaneous
  Country: ZA (occurrence: None)
  Receive Date: 20240315
  Receipt Date: 20240315
  Transmission Date: 20240410
  Serious: Yes (Hospitalization)
  Sender: FDA-Public Use
  Company Number: 2024A061082

PATIENT
  Age: 28124 Day
  Sex: Female

DRUGS (6)
  1. DAPAGLIFLOZIN PROPANEDIOL [Suspect]
     Active Substance: DAPAGLIFLOZIN PROPANEDIOL
     Indication: Diabetes mellitus
     Dosage: 10.0MG UNKNOWN
     Route: 048
  2. SOLIQUA 100/33 [Concomitant]
     Active Substance: INSULIN GLARGINE\LIXISENATIDE
     Dosage: 100.0IU UNKNOWN
     Route: 058
  3. QUETIAPINE [Concomitant]
     Active Substance: QUETIAPINE
     Dosage: 25.0MG UNKNOWN
  4. AMITRIPTYLINE [Concomitant]
     Active Substance: AMITRIPTYLINE
     Dosage: 25.0MG UNKNOWN
  5. SERDEP [Concomitant]
     Dosage: 100.0MG UNKNOWN
  6. SERDEP [Concomitant]
     Dosage: 50.0MG UNKNOWN

REACTIONS (2)
  - Foot fracture [Unknown]
  - Localised infection [Unknown]
